FAERS Safety Report 7947263-3 (Version None)
Quarter: 2011Q4

REPORT INFORMATION
  Report Type: 
  Country: None (occurrence: None)
  Receive Date: 20111129
  Receipt Date: 20111115
  Transmission Date: 20120403
  Serious: Yes (Other)
  Sender: FDA-Public Use
  Company Number: US-ASTRAZENECA-2011SE58165

PATIENT
  Age: 54 Year
  Sex: Female

DRUGS (9)
  1. AMLODIPINE [Concomitant]
  2. VOLTAREN [Concomitant]
  3. VENTOLIN HFA [Concomitant]
  4. PANTOPRAZOLE [Concomitant]
  5. CELEBREX [Concomitant]
  6. TRAMADOL HCL [Concomitant]
  7. SYMBICORT [Suspect]
     Indication: BRONCHIAL HYPERREACTIVITY
     Dosage: 160/4.5 UG, UNKNOWN FREQUENCY
     Route: 055
  8. EXCEDRIN (MIGRAINE) [Concomitant]
     Indication: MIGRAINE
  9. SINGULAIR [Concomitant]

REACTIONS (4)
  - WRONG DRUG ADMINISTERED [None]
  - CEREBROVASCULAR ACCIDENT [None]
  - DEAFNESS UNILATERAL [None]
  - OFF LABEL USE [None]
